FAERS Safety Report 15136363 (Version 1)
Quarter: 2018Q3

REPORT INFORMATION
  Report Type: Spontaneous
  Country: US (occurrence: US)
  Receive Date: 20180618
  Receipt Date: 20180618
  Transmission Date: 20181010
  Serious: Yes (Other)
  Sender: FDA-Public Use
  Company Number: None

PATIENT
  Age: 68 Year
  Sex: Female
  Weight: 53.55 kg

DRUGS (17)
  1. RED YEAST RICE [Concomitant]
     Active Substance: DIETARY SUPPLEMENT
  2. BANYAN BOTANICALS KIDNEY SUPPORT [Concomitant]
  3. ACYCLOVIR. [Suspect]
     Active Substance: ACYCLOVIR
     Indication: HERPES VIRUS INFECTION
     Dosage: ?          QUANTITY:1 DF DOSAGE FORM;OTHER FREQUENCY:2X/DAY THEN 1DAILY;?
     Route: 048
     Dates: start: 20180610, end: 20180617
  4. MELOXICAM. [Concomitant]
     Active Substance: MELOXICAM
  5. CURCUMIN [Concomitant]
     Active Substance: CURCUMIN
  6. VITAMIN B COMPLEX [Concomitant]
     Active Substance: CYANOCOBALAMIN\DEXPANTHENOL\NIACINAMIDE\PYRIDOXINE HYDROCHLORIDE\RIBOFLAVIN 5^-PHOSPHATE SODIUM\THIAMINE HYDROCHLORIDE\VITAMIN B COMPLEX
  7. OMEGA 3 [Concomitant]
     Active Substance: OMEGA-3 FATTY ACIDS
  8. NAC [Concomitant]
  9. CALCIUM/MAGNESIUM/ZINC [Concomitant]
  10. ESTRADIOL TRANSDERMAL SYSTEM [Concomitant]
     Active Substance: ESTRADIOL
  11. TESTOSTERONE CREAM [Concomitant]
     Active Substance: TESTOSTERONE
  12. COQ10 [Concomitant]
     Active Substance: UBIDECARENONE
  13. VITAMIN D3 [Concomitant]
     Active Substance: CHOLECALCIFEROL
  14. BANYAN BOTANICALS I SLEEP SOUNDLY [Concomitant]
  15. PROGESTERONE. [Concomitant]
     Active Substance: PROGESTERONE
  16. BUTA?APAP?CAFF [Concomitant]
  17. XYMOGEN HORMONE PROTECT [Concomitant]

REACTIONS (3)
  - Condition aggravated [None]
  - Drug ineffective [None]
  - Product quality issue [None]

NARRATIVE: CASE EVENT DATE: 20180617
